FAERS Safety Report 5173905-4 (Version None)
Quarter: 2006Q4

REPORT INFORMATION
  Report Type: 
  Country: None (occurrence: None)
  Receive Date: 20061214
  Receipt Date: 20061207
  Transmission Date: 20070319
  Serious: Yes (Hospitalization)
  Sender: FDA-Public Use
  Company Number: 2006AC02322

PATIENT
  Age: 66 Year
  Sex: Female

DRUGS (6)
  1. SEROQUEL [Suspect]
     Indication: PSYCHOTIC DISORDER
     Route: 048
     Dates: end: 20060928
  2. SOLIAN [Interacting]
     Indication: PSYCHOTIC DISORDER
     Route: 048
     Dates: end: 20060928
  3. TOPAMAX [Concomitant]
     Indication: PSYCHOTIC DISORDER
     Route: 048
     Dates: end: 20060928
  4. OMEPRAZOLE [Concomitant]
     Indication: PROPHYLAXIS
     Route: 048
  5. SIMVASTATIN [Concomitant]
     Indication: HYPERLIPIDAEMIA
     Route: 048
  6. ENALAPRIL MALEATE [Concomitant]
     Indication: ESSENTIAL HYPERTENSION
     Route: 048

REACTIONS (2)
  - DRUG INTERACTION [None]
  - ILEUS PARALYTIC [None]
